FAERS Safety Report 4860339-2 (Version None)
Quarter: 2005Q4

REPORT INFORMATION
  Report Type: 
  Country: None (occurrence: None)
  Receive Date: 20051219
  Receipt Date: 20051209
  Transmission Date: 20060501
  Serious: Yes (Other)
  Sender: FDA-Public Use
  Company Number: CA-BRISTOL-MYERS SQUIBB COMPANY-13217666

PATIENT
  Age: 23 Year
  Sex: Female

DRUGS (2)
  1. TEQUIN [Suspect]
  2. PREDNISONE TAB [Concomitant]
     Route: 048

REACTIONS (6)
  - BLOOD CREATININE [None]
  - BLOOD UREA [None]
  - HAEMOGLOBIN DECREASED [None]
  - HYPERGLYCAEMIA [None]
  - HYPERKALAEMIA [None]
  - METABOLIC ACIDOSIS [None]
